FAERS Safety Report 24079416 (Version 6)
Quarter: 2025Q4

REPORT INFORMATION
  Report Type: Spontaneous
  Country: CA (occurrence: CA)
  Receive Date: 20240711
  Receipt Date: 20251103
  Transmission Date: 20260118
  Serious: No
  Sender: PFIZER
  Company Number: CA-PFIZER INC-202400195174

PATIENT
  Age: 4 Year
  Sex: Male

DRUGS (3)
  1. NGENLA [Suspect]
     Active Substance: SOMATROGON-GHLA
     Indication: Growth hormone deficiency
     Dosage: 9.4 MG, WEEKLY
     Route: 058
     Dates: start: 20240614
  2. LIQUID IRON [Concomitant]
     Dosage: 1 DF
  3. VITAMINS [Concomitant]
     Active Substance: VITAMINS
     Dosage: 1 DF

REACTIONS (2)
  - Injection site pain [Not Recovered/Not Resolved]
  - Device issue [Not Recovered/Not Resolved]

NARRATIVE: CASE EVENT DATE: 20240601
